FAERS Safety Report 5797751-3 (Version None)
Quarter: 2008Q2

REPORT INFORMATION
  Report Type: 
  Country: None (occurrence: None)
  Receive Date: 20080630
  Receipt Date: 20080616
  Transmission Date: 20081010
  Serious: Yes (Life-Threatening)
  Sender: FDA-Public Use
  Company Number: 2008S1010348

PATIENT
  Age: 42 Year
  Sex: Female

DRUGS (1)
  1. METHIMAZOLE [Suspect]
     Indication: BASEDOW'S DISEASE

REACTIONS (8)
  - FEBRILE NEUTROPENIA [None]
  - LYMPHADENOPATHY [None]
  - MONONUCLEOSIS HETEROPHILE TEST POSITIVE [None]
  - ODYNOPHAGIA [None]
  - PHARYNGEAL DISORDER [None]
  - PHARYNGOLARYNGEAL PAIN [None]
  - RASH PUSTULAR [None]
  - SKIN LACERATION [None]
